FAERS Safety Report 16322700 (Version 2)
Quarter: 2019Q2

REPORT INFORMATION
  Report Type: Spontaneous
  Country: US (occurrence: US)
  Receive Date: 20190516
  Receipt Date: 20190612
  Transmission Date: 20190711
  Serious: Yes (Other)
  Sender: FDA-Public Use
  Company Number: PHEH2019US020575

PATIENT
  Sex: Male

DRUGS (1)
  1. GLEEVEC [Suspect]
     Active Substance: IMATINIB MESYLATE
     Indication: GASTROINTESTINAL STROMAL TUMOUR
     Dosage: 400 MG, QD
     Route: 048
     Dates: start: 20150528

REACTIONS (7)
  - Gastrointestinal stromal tumour [Unknown]
  - Disturbance in attention [Unknown]
  - Abdominal distension [Unknown]
  - Recurrent cancer [Unknown]
  - Abdominal pain upper [Unknown]
  - Metastases to kidney [Unknown]
  - Constipation [Unknown]
